FAERS Safety Report 15886109 (Version 1)
Quarter: 2019Q1

REPORT INFORMATION
  Report Type: Spontaneous
  Country: ES (occurrence: ES)
  Receive Date: 20190129
  Receipt Date: 20190129
  Transmission Date: 20190417
  Serious: Yes (Hospitalization)
  Sender: FDA-Public Use
  Company Number: PHHY2019ES019305

PATIENT
  Age: 39 Year
  Sex: Male

DRUGS (6)
  1. EPIVIR [Suspect]
     Active Substance: LAMIVUDINE
     Indication: HIV INFECTION
     Dosage: UNK
     Route: 048
     Dates: start: 200506, end: 20060507
  2. VIREAD [Suspect]
     Active Substance: TENOFOVIR DISOPROXIL FUMARATE
     Indication: HIV INFECTION
     Dosage: UNK
     Route: 048
     Dates: start: 200506, end: 20060507
  3. DALACIN [Suspect]
     Active Substance: CLINDAMYCIN
     Indication: HIV INFECTION
     Dosage: UNK
     Route: 048
     Dates: start: 200506, end: 20060507
  4. CLAMOXYL (AMOXICILLIN TRIHYDRATE) [Suspect]
     Active Substance: AMOXICILLIN
     Indication: CELLULITIS
     Dosage: 0.73 G, QD
     Route: 048
     Dates: start: 20060401, end: 20060415
  5. IBUPROFEN. [Suspect]
     Active Substance: IBUPROFEN
     Indication: PAIN
     Dosage: 0.6 G, QD
     Route: 048
     Dates: start: 20060401, end: 20060408
  6. VIRAMUNE [Suspect]
     Active Substance: NEVIRAPINE
     Indication: HIV INFECTION
     Dosage: UNK, QD
     Route: 048
     Dates: start: 200506, end: 20060507

REACTIONS (1)
  - Hepatitis cholestatic [Recovered/Resolved]

NARRATIVE: CASE EVENT DATE: 20060423
